FAERS Safety Report 8255448-4 (Version None)
Quarter: 2012Q1

REPORT INFORMATION
  Report Type: 
  Country: None (occurrence: None)
  Receive Date: 20120330
  Receipt Date: 20120319
  Transmission Date: 20120608
  Serious: Yes (Hospitalization, Other)
  Sender: FDA-Public Use
  Company Number: AUR-APL-2012-01008

PATIENT
  Age: 62 Year
  Sex: Female
  Weight: 61 kg

DRUGS (4)
  1. VENLAFAXINE [Suspect]
     Indication: DEPRESSION
     Dates: start: 20110101, end: 20110101
  2. CODEINE SULFATE [Suspect]
     Indication: PAIN
  3. ALPRAZOLAM [Suspect]
     Indication: PANIC ATTACK
     Dosage: 8 MG (2 MG, 4 IN 1 D), UNKONWN
  4. EFFEXOR XR [Suspect]
     Indication: DEPRESSION
     Dosage: (150 MG, 1 D, UNKNOWN)

REACTIONS (28)
  - PYREXIA [None]
  - ANGER [None]
  - SPINAL OPERATION [None]
  - HAND FRACTURE [None]
  - SINUS DISORDER [None]
  - JOINT SWELLING [None]
  - INTERVERTEBRAL DISC PROTRUSION [None]
  - THROMBOSIS [None]
  - PSYCHOMOTOR HYPERACTIVITY [None]
  - LYMPHADENOPATHY [None]
  - PRODUCT QUALITY ISSUE [None]
  - DRUG INEFFECTIVE [None]
  - DEATH OF RELATIVE [None]
  - HEADACHE [None]
  - ECONOMIC PROBLEM [None]
  - FALL [None]
  - SYNCOPE [None]
  - TREATMENT NONCOMPLIANCE [None]
  - HYPERHIDROSIS [None]
  - BRONCHITIS [None]
  - INCORRECT DOSE ADMINISTERED [None]
  - PERIORBITAL HAEMATOMA [None]
  - BACK INJURY [None]
  - WRIST FRACTURE [None]
  - FACIAL BONES FRACTURE [None]
  - PANIC ATTACK [None]
  - MUSCULOSKELETAL DISORDER [None]
  - MENTAL DISORDER [None]
